FAERS Safety Report 4815533-3 (Version None)
Quarter: 2005Q4

REPORT INFORMATION
  Report Type: 
  Country: None (occurrence: None)
  Receive Date: 20051028
  Receipt Date: 20051028
  Transmission Date: 20060501
  Serious: No
  Sender: FDA-Public Use
  Company Number: None

PATIENT
  Age: 57 Year
  Sex: Female
  Weight: 81.6475 kg

DRUGS (1)
  1. ESTRADIOL [Suspect]

REACTIONS (4)
  - UTERINE CERVICAL EROSION [None]
  - VAGINAL EROSION [None]
  - VAGINAL INFECTION [None]
  - VAGINAL PAIN [None]
